FAERS Safety Report 23129256 (Version 7)
Quarter: 2025Q3

REPORT INFORMATION
  Report Type: Spontaneous
  Country: US (occurrence: US)
  Receive Date: 20231031
  Receipt Date: 20250908
  Transmission Date: 20251021
  Serious: Yes (Death, Other)
  Sender: AMGEN
  Company Number: US-AMGEN-USASP2023192836

PATIENT

DRUGS (1)
  1. EPOETIN ALFA [Suspect]
     Active Substance: ERYTHROPOIETIN
     Indication: Anaemia
     Dosage: UNK UNK, QWK, 450 IU/KG (TITRATION UP TO 1050 IU/KG; MAXIMUM TOTAL DOSE 80,000 IU)
     Route: 058

REACTIONS (16)
  - Death [Fatal]
  - Adverse event [Unknown]
  - Neoplasm malignant [Unknown]
  - Precancerous condition [Unknown]
  - Nephropathy toxic [Unknown]
  - Acute myeloid leukaemia [Unknown]
  - Myelodysplastic syndrome [Unknown]
  - Diarrhoea [Unknown]
  - COVID-19 [Unknown]
  - Asthenia [Unknown]
  - Anaemia [Unknown]
  - Lethargy [Unknown]
  - Fatigue [Unknown]
  - Malaise [Unknown]
  - Hypertension [Unknown]
  - Injection site reaction [Unknown]
